FAERS Safety Report 17413192 (Version 1)
Quarter: 2020Q1

REPORT INFORMATION
  Report Type: Spontaneous
  Country: US (occurrence: US)
  Receive Date: 20200213
  Receipt Date: 20200213
  Transmission Date: 20200409
  Serious: Yes (Other)
  Sender: FDA-Public Use
  Company Number: US-009507513-2002USA002736

PATIENT
  Age: 67 Year
  Sex: Male

DRUGS (1)
  1. PRINIVIL [Suspect]
     Active Substance: LISINOPRIL
     Indication: ESSENTIAL HYPERTENSION
     Dosage: UNK
     Route: 048

REACTIONS (1)
  - Angioedema [Recovered/Resolved]
